FAERS Safety Report 13396192 (Version 2)
Quarter: 2017Q2

REPORT INFORMATION
  Report Type: Spontaneous
  Country: US (occurrence: US)
  Receive Date: 20170403
  Receipt Date: 20170405
  Transmission Date: 20170830
  Serious: Yes (Other)
  Sender: FDA-Public Use
  Company Number: US-JNJFOC-20170332771

PATIENT
  Age: 22 Year
  Sex: Male
  Weight: 145.32 kg

DRUGS (2)
  1. REMICADE [Suspect]
     Active Substance: INFLIXIMAB
     Indication: COLITIS ULCERATIVE
     Route: 042
  2. REMICADE [Suspect]
     Active Substance: INFLIXIMAB
     Indication: COLITIS ULCERATIVE
     Route: 042

REACTIONS (6)
  - Body mass index increased [Unknown]
  - Colitis ulcerative [Unknown]
  - Off label use [Unknown]
  - Therapeutic response decreased [Unknown]
  - Gastritis [Unknown]
  - Product use issue [Unknown]

NARRATIVE: CASE EVENT DATE: 20160825
